FAERS Safety Report 8198638-1 (Version None)
Quarter: 2012Q1

REPORT INFORMATION
  Report Type: 
  Country: None (occurrence: None)
  Receive Date: 20120309
  Receipt Date: 20120120
  Transmission Date: 20120608
  Serious: No
  Sender: FDA-Public Use
  Company Number: US-AMGEN-USASP2011032175

PATIENT
  Sex: Female

DRUGS (9)
  1. SYNTHROID [Concomitant]
     Dosage: UNK
  2. XANAX [Concomitant]
     Dosage: UNK
  3. LOVAZA [Concomitant]
     Dosage: UNK
  4. TOPROL-XL [Concomitant]
     Dosage: UNK
  5. ZOCOR [Concomitant]
     Dosage: UNK
  6. PROLIA [Suspect]
     Indication: OSTEOPOROSIS POSTMENOPAUSAL
     Dosage: 60 MG, Q6MO
     Route: 058
     Dates: start: 20100924
  7. MULTIVITAMIN AND MINERAL [Concomitant]
     Dosage: UNK
  8. PROTONIX [Concomitant]
     Dosage: UNK
  9. CALCIUM +D [Concomitant]

REACTIONS (1)
  - PAIN IN JAW [None]
